FAERS Safety Report 5446389-6 (Version None)
Quarter: 2007Q3

REPORT INFORMATION
  Report Type: 
  Country: None (occurrence: None)
  Receive Date: 20070907
  Receipt Date: 20070827
  Transmission Date: 20080115
  Serious: Yes (Hospitalization)
  Sender: FDA-Public Use
  Company Number: US-ROCHE-512738

PATIENT
  Age: 42 Year
  Sex: Female
  Weight: 66.5 kg

DRUGS (7)
  1. CAPECITABINE [Suspect]
     Dosage: AS PER PROTOCOL GIVEN TWICE DAILY ON DAYS ONE TO EIGHT EVERY TWO WEEK CYCLE.
     Route: 048
     Dates: start: 20070814, end: 20070816
  2. BEVACIZUMAB [Suspect]
     Dosage: GIVEN ON DAY ONE EVERY TWO WEEKS.
     Route: 042
     Dates: start: 20070814, end: 20070816
  3. OXALIPLATIN [Suspect]
     Dosage: GIVEN ON DAY ONE EVERY TWO WEEKS.
     Route: 042
     Dates: start: 20070814, end: 20070816
  4. REPLIVA 21/7 [Concomitant]
     Dosage: TRADE NAME REPORTED AS REPLIVA.
     Dates: start: 20070808
  5. COMPAZINE [Concomitant]
     Dates: start: 20070814, end: 20070816
  6. NORCO [Concomitant]
     Dosage: TDD REPORTED AS 10/225 MG.
     Dates: start: 20070703
  7. ARANESP [Concomitant]
     Dates: start: 20070814, end: 20070814

REACTIONS (4)
  - CARDIOTOXICITY [None]
  - CHEST PAIN [None]
  - PERICARDITIS [None]
  - VOMITING [None]
